FAERS Safety Report 16534394 (Version 1)
Quarter: 2019Q3

REPORT INFORMATION
  Report Type: Spontaneous
  Country: TW (occurrence: TW)
  Receive Date: 20190705
  Receipt Date: 20190705
  Transmission Date: 20191004
  Serious: Yes (Hospitalization, Other)
  Sender: FDA-Public Use
  Company Number: TW-AMGEN-TWNSP2019107837

PATIENT
  Age: 63 Year
  Sex: Female

DRUGS (1)
  1. ENBREL [Suspect]
     Active Substance: ETANERCEPT
     Indication: RHEUMATOID ARTHRITIS
     Dosage: 25 MG, BIW
     Route: 058
     Dates: start: 20070604, end: 20190604

REACTIONS (3)
  - Lumbar spinal stenosis [Recovering/Resolving]
  - Femur fracture [Recovering/Resolving]
  - Spinal compression fracture [Recovering/Resolving]

NARRATIVE: CASE EVENT DATE: 20190604
